FAERS Safety Report 16767536 (Version 1)
Quarter: 2019Q4

REPORT INFORMATION
  Report Type: Spontaneous
  Country: US (occurrence: US)
  Receive Date: 20190903
  Receipt Date: 20190903
  Transmission Date: 20200122
  Serious: No
  Sender: FDA-Public Use
  Company Number: None

PATIENT
  Age: 22 Year
  Sex: Female
  Weight: 63 kg

DRUGS (3)
  1. OMNIPAQUE [Suspect]
     Active Substance: IOHEXOL
     Indication: COMPUTERISED TOMOGRAM HEAD
     Dosage: ?          OTHER FREQUENCY:SINGLE IV BOLUS;?
     Route: 040
  2. OMNIPAQUE [Concomitant]
     Active Substance: IOHEXOL
     Dates: start: 20190903, end: 20190903
  3. OMNIPAQUE [Suspect]
     Active Substance: IOHEXOL
     Indication: HYPERPROLACTINAEMIA
     Dosage: ?          OTHER FREQUENCY:SINGLE IV BOLUS;?
     Route: 040

REACTIONS (2)
  - Urticaria [None]
  - Throat irritation [None]

NARRATIVE: CASE EVENT DATE: 20190903
